FAERS Safety Report 22382898 (Version 1)
Quarter: 2023Q2

REPORT INFORMATION
  Report Type: Spontaneous
  Country: IT (occurrence: IT)
  Receive Date: 20230530
  Receipt Date: 20230530
  Transmission Date: 20230721
  Serious: Yes (Other)
  Sender: FDA-Public Use
  Company Number: None

PATIENT
  Age: 53 Year
  Sex: Female
  Weight: 57 kg

DRUGS (1)
  1. KEYTRUDA [Suspect]
     Active Substance: PEMBROLIZUMAB
     Indication: Lung squamous cell carcinoma stage IV
     Dosage: KEYTRUDA 25 MG/ML CONCENTRATE FOR SOLUTION FOR INFUSION. THE DOSE OF KEYTRUDA IN ADULTS IS 200 MG EV
     Route: 042
     Dates: start: 20201002

REACTIONS (4)
  - Musculoskeletal pain [Not Recovered/Not Resolved]
  - Cancer fatigue [Not Recovered/Not Resolved]
  - Dyspnoea at rest [Not Recovered/Not Resolved]
  - Cystitis [Not Recovered/Not Resolved]

NARRATIVE: CASE EVENT DATE: 20230112
